FAERS Safety Report 5739646-7 (Version None)
Quarter: 2008Q2

REPORT INFORMATION
  Report Type: 
  Country: None (occurrence: None)
  Receive Date: 20080513
  Receipt Date: 20080429
  Transmission Date: 20081010
  Serious: Yes (Other)
  Sender: FDA-Public Use
  Company Number: SPV1-2008-00974

PATIENT
  Age: 58 Year
  Sex: Male

DRUGS (6)
  1. FOSRENOL [Suspect]
     Indication: HYPERPHOSPHATAEMIA
     Dosage: 500 MG, 3X/DAY:TID, ORAL
     Route: 048
     Dates: start: 20080125, end: 20080307
  2. SENSIPAR(CINACALCET HYDROCHLORIDE) [Suspect]
     Indication: HYPERPARATHYROIDISM
     Dosage: 30 MG, 1X/DAY:QD,
     Dates: start: 20080304, end: 20080305
  3. LIPITOR [Concomitant]
  4. LOSEC /00661201/ (OMEPRAZOLE) [Concomitant]
  5. METOPROLOL TARTRATE [Concomitant]
  6. INSULIN (INSULIN) [Concomitant]

REACTIONS (1)
  - RASH PRURITIC [None]
